FAERS Safety Report 11592865 (Version 2)
Quarter: 2015Q4

REPORT INFORMATION
  Report Type: Spontaneous
  Country: US (occurrence: US)
  Receive Date: 20151005
  Receipt Date: 20151007
  Transmission Date: 20160304
  Serious: Yes (Hospitalization)
  Sender: FDA-Public Use
  Company Number: US-BIOGENIDEC-2015BI133945

PATIENT
  Age: 64 Year
  Sex: Female

DRUGS (1)
  1. PLEGRIDY [Suspect]
     Active Substance: PEGINTERFERON BETA-1A
     Indication: MULTIPLE SCLEROSIS
     Dates: start: 20150916, end: 20150930

REACTIONS (6)
  - Paralysis [Unknown]
  - Eye disorder [Unknown]
  - Muscle spasms [Unknown]
  - Unresponsive to stimuli [Recovered/Resolved]
  - Pyrexia [Recovered/Resolved]
  - Burning sensation [Recovered/Resolved]

NARRATIVE: CASE EVENT DATE: 20150930
